FAERS Safety Report 6797377-9 (Version None)
Quarter: 2010Q2

REPORT INFORMATION
  Report Type: 
  Country: None (occurrence: None)
  Receive Date: 20100623
  Receipt Date: 20100607
  Transmission Date: 20101027
  Serious: Yes (Disabling)
  Sender: FDA-Public Use
  Company Number: THQ2010A01605

PATIENT
  Age: 65 Year
  Sex: Male

DRUGS (9)
  1. LANSOPRAZOLE [Suspect]
     Indication: DYSPEPSIA
  2. AMITRIPTYLINE HYDROCHLORIDE [Suspect]
     Indication: DEPRESSION
     Dosage: 25 MG
  3. AMITRIPTYLINE HYDROCHLORIDE [Suspect]
     Indication: PAIN
     Dosage: 25 MG
  4. AMITRIPTYLINE HYDROCHLORIDE [Suspect]
     Indication: SLEEP DISORDER
     Dosage: 25 MG
  5. ATORVASTATIN [Suspect]
  6. BUPRENORPHINE [Suspect]
     Indication: BACK PAIN
     Dosage: 600 MCG (25 MCG, 1 IN 1 HR)
     Dates: start: 20090501
  7. NEUPRO [Suspect]
     Indication: PARKINSON'S DISEASE
     Dosage: 4 MG CUTANEOUS
     Route: 003
     Dates: start: 20090801
  8. SELEGILINE HCL [Suspect]
     Indication: PARKINSON'S DISEASE
     Dosage: 0.05 MG PER ORAL
     Route: 048
     Dates: start: 20100120, end: 20100123
  9. SINEMET CR [Suspect]
     Indication: PARKINSON'S DISEASE
     Dosage: 9 DF (1 DF, 9 IN 1 D) PER ORAL
     Route: 048
     Dates: start: 20090801

REACTIONS (4)
  - DIPLOPIA [None]
  - DRUG INTERACTION [None]
  - DYSARTHRIA [None]
  - NAUSEA [None]
